FAERS Safety Report 16137685 (Version 1)
Quarter: 2019Q1

REPORT INFORMATION
  Report Type: Spontaneous
  Country: US (occurrence: US)
  Receive Date: 20190330
  Receipt Date: 20190330
  Transmission Date: 20190418
  Serious: Yes (Congenital Anomaly)
  Sender: FDA-Public Use
  Company Number: US-MANUFACTURER UNKNOWN-18US011567

PATIENT
  Sex: Female
  Weight: 2.99 kg

DRUGS (1)
  1. RIBAVIRIN. [Suspect]
     Active Substance: RIBAVIRIN

REACTIONS (5)
  - Rash [None]
  - Exposure via father [None]
  - Cough [None]
  - Respiratory symptom [None]
  - Developmental hip dysplasia [None]

NARRATIVE: CASE EVENT DATE: 2017
